FAERS Safety Report 8524172-2 (Version None)
Quarter: 2012Q3

REPORT INFORMATION
  Report Type: 
  Country: None (occurrence: None)
  Receive Date: 20120720
  Receipt Date: 20071009
  Transmission Date: 20120928
  Serious: Yes (Death, Other)
  Sender: FDA-Public Use
  Company Number: CO-PFIZER INC-2012172243

PATIENT
  Age: 79 Year
  Sex: Female

DRUGS (5)
  1. LIPITOR [Suspect]
     Dosage: 10 MG, 1X/DAY
  2. LIPITOR [Suspect]
     Dosage: 20 MG, 1X/DAY
  3. OLMESARTAN MEDOXOMIL [Suspect]
     Dosage: 20 MG, 1X/DAY
  4. ACCUPRIL [Suspect]
     Dosage: 20 MG, 1X/DAY
  5. GLIBENCLAMIDE [Concomitant]
     Dosage: 5 MG, 1X/DAY

REACTIONS (8)
  - MENTAL DISORDER [None]
  - TOBACCO ABUSE [None]
  - PROCEDURAL HYPERTENSION [None]
  - HAEMATURIA [None]
  - ABDOMINAL PAIN UPPER [None]
  - ANGIOPLASTY [None]
  - PYURIA [None]
  - DEATH [None]
